FAERS Safety Report 8240239-0 (Version None)
Quarter: 2012Q1

REPORT INFORMATION
  Report Type: 
  Country: None (occurrence: None)
  Receive Date: 20120328
  Receipt Date: 20120320
  Transmission Date: 20120608
  Serious: Yes (Hospitalization)
  Sender: FDA-Public Use
  Company Number: DE-ELI_LILLY_AND_COMPANY-DE201203005593

PATIENT
  Age: 85 Year
  Sex: Female

DRUGS (4)
  1. FALITHROM [Concomitant]
  2. FORTEO [Suspect]
     Indication: OSTEOPOROSIS
     Dosage: UNK, QD
     Route: 058
     Dates: start: 20110401, end: 20120310
  3. ANTIHYPERTENSIVES [Concomitant]
     Indication: HYPERTENSION
  4. DEKRISTOL [Concomitant]

REACTIONS (2)
  - HAEMATEMESIS [None]
  - GASTRITIS [None]
